FAERS Safety Report 4828817-X (Version None)
Quarter: 2005Q4

REPORT INFORMATION
  Report Type: 
  Country: None (occurrence: None)
  Receive Date: 20051014
  Receipt Date: 20050708
  Transmission Date: 20060501
  Serious: No
  Sender: FDA-Public Use
  Company Number: 2005SP001284

PATIENT
  Age: 82 Year
  Sex: Female
  Weight: 58.0604 kg

DRUGS (4)
  1. LUNESTA [Suspect]
     Indication: INSOMNIA
     Dosage: 3 MG; HS; ORAL
     Route: 048
  2. NORVASC [Concomitant]
  3. KOREG [Concomitant]
  4. CLONIDINE [Concomitant]

REACTIONS (1)
  - DYSGEUSIA [None]
